FAERS Safety Report 11933648 (Version 2)
Quarter: 2016Q4

REPORT INFORMATION
  Report Type: Spontaneous
  Country: CN (occurrence: CN)
  Receive Date: 20160121
  Receipt Date: 20161128
  Transmission Date: 20170206
  Serious: Yes (Hospitalization)
  Sender: FDA-Public Use
  Company Number: CN-SUN PHARMACEUTICAL INDUSTRIES LTD-2016R1-109768

PATIENT
  Age: 43 Year
  Sex: Male
  Weight: 76 kg

DRUGS (8)
  1. LEVOTHYROXINE. [Concomitant]
     Active Substance: LEVOTHYROXINE
     Indication: PITUITARY TUMOUR BENIGN
     Dosage: 50 ?G, ONCE DAILY
     Route: 065
  2. LEVOTHYROXINE. [Concomitant]
     Active Substance: LEVOTHYROXINE
     Dosage: 125 ?G, ONCE DAILY
     Route: 065
     Dates: start: 200906
  3. PREDNISONE. [Suspect]
     Active Substance: PREDNISONE
     Indication: PITUITARY TUMOUR BENIGN
     Dosage: 7.5 MG, ONCE DAILY
     Route: 065
  4. PREDNISONE. [Suspect]
     Active Substance: PREDNISONE
     Dosage: 5 MG, QD
     Route: 065
  5. PREDNISONE. [Suspect]
     Active Substance: PREDNISONE
     Dosage: 2.5 MG, ONCE DAILY
     Dates: start: 201112
  6. PREDNISONE. [Suspect]
     Active Substance: PREDNISONE
     Dosage: 5 MG ONCE DAILY
     Route: 065
     Dates: start: 200809
  7. PREDNISONE. [Suspect]
     Active Substance: PREDNISONE
     Dosage: 5 MG, ONCE DAILY
     Dates: start: 200906
  8. LEVOTHYROXINE. [Concomitant]
     Active Substance: LEVOTHYROXINE
     Dosage: 100 ?G, ONCE DAILY
     Route: 065
     Dates: start: 200809

REACTIONS (3)
  - Necrosis [Unknown]
  - Infection [Recovered/Resolved]
  - Pituitary-dependent Cushing^s syndrome [Recovering/Resolving]

NARRATIVE: CASE EVENT DATE: 201112
